FAERS Safety Report 20114380 (Version 2)
Quarter: 2022Q1

REPORT INFORMATION
  Report Type: Spontaneous
  Country: US (occurrence: US)
  Receive Date: 20211125
  Receipt Date: 20220103
  Transmission Date: 20220423
  Serious: No
  Sender: FDA-Public Use
  Company Number: US-JNJFOC-20211134123

PATIENT
  Sex: Female

DRUGS (1)
  1. MENS ROGAINE EXTRA STRENGTH [Suspect]
     Active Substance: MINOXIDIL
     Indication: Alopecia
     Dosage: 5ML ONCE A DAY
     Route: 061
     Dates: start: 20210517

REACTIONS (4)
  - Product use issue [Unknown]
  - Off label use [Unknown]
  - Overdose [Unknown]
  - Product colour issue [Unknown]

NARRATIVE: CASE EVENT DATE: 20210517
